FAERS Safety Report 4845662-X (Version None)
Quarter: 2005Q4

REPORT INFORMATION
  Report Type: 
  Country: None (occurrence: None)
  Receive Date: 20051206
  Receipt Date: 20041201
  Transmission Date: 20060501
  Serious: Yes (Hospitalization)
  Sender: FDA-Public Use
  Company Number: PHBS2004JP16097

PATIENT
  Age: 75 Year
  Sex: Female
  Weight: 51 kg

DRUGS (4)
  1. TEGRETOL [Suspect]
     Indication: POST HERPETIC NEURALGIA
     Dosage: 200 MG, TID
     Route: 048
     Dates: start: 20031001, end: 20040611
  2. AMITRIPTYLINE HCL [Concomitant]
     Indication: ANXIETY
     Dosage: 20 MG/DAY
     Route: 048
  3. MAGNESIUM OXIDE [Concomitant]
     Indication: CONSTIPATION
     Dosage: 1 G/DAY
     Route: 048
  4. FAMOTIDINE [Concomitant]
     Indication: GASTRITIS
     Dosage: 20 G/DAY
     Route: 048

REACTIONS (5)
  - BLOOD ALKALINE PHOSPHATASE INCREASED [None]
  - BRADYCARDIA [None]
  - GAMMA-GLUTAMYLTRANSFERASE INCREASED [None]
  - SICK SINUS SYNDROME [None]
  - SINUS ARREST [None]
